FAERS Safety Report 19288249 (Version 5)
Quarter: 2021Q3

REPORT INFORMATION
  Report Type: Spontaneous
  Country: US (occurrence: US)
  Receive Date: 20210521
  Receipt Date: 20210810
  Transmission Date: 20211014
  Serious: Yes (Other)
  Sender: FDA-Public Use
  Company Number: US-PFIZER INC-2021461391

PATIENT
  Age: 51 Year
  Sex: Female

DRUGS (7)
  1. IBRANCE [Suspect]
     Active Substance: PALBOCICLIB
     Dosage: 100 MG
     Dates: start: 20210408, end: 202104
  2. IBRANCE [Suspect]
     Active Substance: PALBOCICLIB
     Dosage: 75 MG
     Dates: start: 20210507, end: 20210701
  3. DEXAMETHASONE. [Suspect]
     Active Substance: DEXAMETHASONE
     Dosage: UNK
  4. IBRANCE [Suspect]
     Active Substance: PALBOCICLIB
     Dosage: 125 MG
     Dates: start: 20210426, end: 2021
  5. IBRANCE [Suspect]
     Active Substance: PALBOCICLIB
     Dosage: 125 MG
     Dates: start: 20210412, end: 202104
  6. IBRANCE [Suspect]
     Active Substance: PALBOCICLIB
     Dosage: 100 MG
     Dates: start: 20210507, end: 2021
  7. IMBRUVICA [Concomitant]
     Active Substance: IBRUTINIB
     Dosage: UNK

REACTIONS (12)
  - Faeces soft [Unknown]
  - White blood cell count decreased [Not Recovered/Not Resolved]
  - Nausea [Recovering/Resolving]
  - Diarrhoea [Unknown]
  - Pyrexia [Unknown]
  - Febrile neutropenia [Recovered/Resolved]
  - Neutrophil count decreased [Unknown]
  - Sinusitis [Unknown]
  - Alopecia [Unknown]
  - Irritable bowel syndrome [Unknown]
  - Gastrooesophageal reflux disease [Unknown]
  - Insomnia [Unknown]

NARRATIVE: CASE EVENT DATE: 2021
